FAERS Safety Report 6655049-5 (Version None)
Quarter: 2010Q1

REPORT INFORMATION
  Report Type: 
  Country: None (occurrence: None)
  Receive Date: 20100329
  Receipt Date: 20091218
  Transmission Date: 20100710
  Serious: Yes (Life-Threatening, Other)
  Sender: FDA-Public Use
  Company Number: US-JNJFOC-20090305579

PATIENT
  Sex: Male
  Weight: 95.26 kg

DRUGS (3)
  1. LEVAQUIN [Suspect]
     Indication: CHRONIC SINUSITIS
     Route: 048
  2. IBUPROFEN [Concomitant]
     Indication: CHRONIC SINUSITIS
     Route: 065
  3. VICODIN [Concomitant]
     Indication: PAIN
     Route: 065

REACTIONS (3)
  - GRAND MAL CONVULSION [None]
  - TONGUE HAEMORRHAGE [None]
  - TOOTH FRACTURE [None]
